FAERS Safety Report 7211165-0 (Version None)
Quarter: 2010Q4

REPORT INFORMATION
  Report Type: 
  Country: None (occurrence: None)
  Receive Date: 20101223
  Receipt Date: 20101208
  Transmission Date: 20110411
  Serious: Yes (Disabling, Other)
  Sender: FDA-Public Use
  Company Number: ACO_20881_2010

PATIENT
  Age: 68 Year
  Sex: Female

DRUGS (6)
  1. AMPYRA [Suspect]
     Indication: PRODUCT USED FOR UNKNOWN INDICATION
     Dosage: 10 MG, BID, ORAL
     Route: 048
     Dates: start: 20101021, end: 20101206
  2. TIZANIDINE [Suspect]
  3. BACLOFEN [Concomitant]
  4. ESTROGEN NOS [Concomitant]
  5. CYMBALTA [Concomitant]
  6. COPAXONE [Concomitant]

REACTIONS (3)
  - ABASIA [None]
  - MUSCLE SPASTICITY [None]
  - PARALYSIS [None]
